FAERS Safety Report 10911833 (Version 1)
Quarter: 2015Q1

REPORT INFORMATION
  Report Type: Spontaneous
  Country: US (occurrence: None)
  Receive Date: 20150310
  Receipt Date: 20150310
  Transmission Date: 20150721
  Serious: No
  Sender: FDA-Public Use
  Company Number: None

PATIENT
  Age: 6 Year
  Sex: Female
  Weight: 24.95 kg

DRUGS (1)
  1. CLEAR LAX [Suspect]
     Active Substance: POLYETHYLENE GLYCOL 3350
     Indication: CONSTIPATION
     Dosage: ONE HALF A CAPFUL
     Route: 048
     Dates: start: 20120331, end: 20150131

REACTIONS (5)
  - No therapeutic response [None]
  - Abnormal behaviour [None]
  - Aggression [None]
  - Obsessive-compulsive disorder [None]
  - Oppositional defiant disorder [None]

NARRATIVE: CASE EVENT DATE: 20150309
